FAERS Safety Report 8002717-9 (Version None)
Quarter: 2011Q4

REPORT INFORMATION
  Report Type: 
  Country: None (occurrence: None)
  Receive Date: 20111222
  Receipt Date: 20111216
  Transmission Date: 20120403
  Serious: Yes (Hospitalization)
  Sender: FDA-Public Use
  Company Number: US-SANOFI-AVENTIS-2011SA082571

PATIENT
  Age: 77 Year
  Sex: Male

DRUGS (5)
  1. CRESTOR [Concomitant]
  2. VITAMIN D [Concomitant]
  3. ASPIRIN [Concomitant]
  4. PLAVIX [Suspect]
     Dates: start: 20050101
  5. ANTIHYPERTENSIVES [Concomitant]

REACTIONS (2)
  - MALIGNANT MELANOMA [None]
  - IMPAIRED HEALING [None]
